FAERS Safety Report 20574800 (Version 5)
Quarter: 2022Q4

REPORT INFORMATION
  Report Type: Report from Study
  Country: CN (occurrence: CN)
  Receive Date: 20220310
  Receipt Date: 20221230
  Transmission Date: 20230113
  Serious: Yes (Hospitalization)
  Sender: FDA-Public Use
  Company Number: CN-NOVARTISPH-NVSC2022CN054143

PATIENT
  Age: 58 Year
  Sex: Female
  Weight: 65 kg

DRUGS (2)
  1. TYKERB [Suspect]
     Active Substance: LAPATINIB DITOSYLATE
     Indication: HER2 positive breast cancer
     Dosage: 1250 MG, QD (21 DAYS AS A CYCLE)
     Route: 048
     Dates: start: 20220111, end: 20220221
  2. CAPECITABINE [Suspect]
     Active Substance: CAPECITABINE
     Indication: HER2 positive breast cancer
     Dosage: 2000 MG/M2, BID (1.5G IN THE MORNING AND 2.0G IN THE EVENING, WITH AN INTERVAL OF 12 HOURS, PO, CONT
     Route: 048
     Dates: start: 20220111, end: 20220214

REACTIONS (2)
  - Musculoskeletal disorder [Recovered/Resolved]
  - Pain [Recovered/Resolved]

NARRATIVE: CASE EVENT DATE: 20220211
